FAERS Safety Report 4506501-X (Version None)
Quarter: 2004Q4

REPORT INFORMATION
  Report Type: 
  Country: None (occurrence: None)
  Receive Date: 20041122
  Receipt Date: 20041109
  Transmission Date: 20050328
  Serious: Yes (Other)
  Sender: FDA-Public Use
  Company Number: GR-ABBOTT-04P-066-0280209-00

PATIENT
  Age: 3 Year
  Sex: Male
  Weight: 15 kg

DRUGS (1)
  1. KLARICID SUSPENSION [Suspect]
     Indication: TONSILLITIS
     Dosage: TOTAL DOSE 20MG/KG/DAY
     Dates: start: 20041031

REACTIONS (1)
  - RASH PRURITIC [None]
